FAERS Safety Report 5800077-2 (Version None)
Quarter: 2008Q3

REPORT INFORMATION
  Report Type: 
  Country: None (occurrence: None)
  Receive Date: 20080703
  Receipt Date: 20080626
  Transmission Date: 20090109
  Serious: Yes (Hospitalization, Other)
  Sender: FDA-Public Use
  Company Number: US-ROCHE-551440

PATIENT
  Sex: Female

DRUGS (6)
  1. PEG-INTERFERON A-2A (RO 25-8310) [Suspect]
     Dosage: FORM: PRE-FILLED SYRINGE (PFS)
     Route: 065
     Dates: start: 20071105, end: 20080211
  2. PEG-INTERFERON A-2A (RO 25-8310) [Suspect]
     Route: 065
     Dates: start: 20080214
  3. PEG-INTERFERON A-2A (RO 25-8310) [Suspect]
     Route: 065
     Dates: start: 20080509
  4. RIBAVIRIN [Suspect]
     Route: 065
     Dates: start: 20071105, end: 20080211
  5. RIBAVIRIN [Suspect]
     Route: 065
  6. RIBAVIRIN [Suspect]
     Route: 065
     Dates: start: 20080509

REACTIONS (2)
  - CONVULSION [None]
  - SUICIDAL IDEATION [None]
